FAERS Safety Report 4616699-0 (Version None)
Quarter: 2005Q2

REPORT INFORMATION
  Report Type: 
  Country: None (occurrence: None)
  Receive Date: 20050311
  Receipt Date: 20050208
  Transmission Date: 20051028
  Serious: No
  Sender: FDA-Public Use
  Company Number: 2005-00239

PATIENT
  Sex: Male

DRUGS (2)
  1. VELCADE [Suspect]
     Indication: MULTIPLE MYELOMA
     Dosage: 1.20 MG/M2 1/WEEK IV
     Route: 042
     Dates: start: 20040101
  2. DEXAMETHASONE [Concomitant]

REACTIONS (1)
  - ANOREXIA [None]
